FAERS Safety Report 5804288-1 (Version None)
Quarter: 2008Q3

REPORT INFORMATION
  Report Type: 
  Country: None (occurrence: None)
  Receive Date: 20080707
  Receipt Date: 20080620
  Transmission Date: 20090109
  Serious: Yes (Hospitalization)
  Sender: FDA-Public Use
  Company Number: DSA_31945_2008

PATIENT
  Sex: Female

DRUGS (5)
  1. LORAZEPAM [Suspect]
     Indication: DRUG USE FOR UNKNOWN INDICATION
     Dosage: 0.5 MG BID; ORAL
     Route: 048
  2. CYMBALTA (CYMBALTA - DULOXETINE) (NOT SPECIFIED) (VALPROATE SODIUM/VAL [Suspect]
     Indication: DEPRESSION
     Dosage: ORAL
     Route: 048
  3. ERGENYL CHRONO (ERGENYL CHRONO - CHLORPROTHIXENE HYDROCHLORIDE) (NOT S [Suspect]
     Indication: DRUG USE FOR UNKNOWN INDICATION
     Dosage: 300 MG BID; ORAL
     Route: 048
  4. REMERGIL (REMERGIL - MIRTAZAPINE (NOT SPECIFIED) [Suspect]
     Indication: DRUG USE FOR UNKNOWN INDICATION
     Dosage: 45 MG, QD; ORAL
     Route: 048
  5. TRUXAL /00012102/ (TRUXAL - [Suspect]
     Indication: DRUG USE FOR UNKNOWN INDICATION
     Dosage: 50 MG, BID; ORAL
     Route: 048

REACTIONS (3)
  - MYDRIASIS [None]
  - SOPOR [None]
  - TACHYCARDIA [None]
